FAERS Safety Report 19381601 (Version 1)
Quarter: 2021Q2

REPORT INFORMATION
  Report Type: Spontaneous
  Country: US (occurrence: US)
  Receive Date: 20210605
  Receipt Date: 20210605
  Transmission Date: 20210717
  Serious: Yes (Hospitalization)
  Sender: FDA-Public Use
  Company Number: None

PATIENT
  Age: 25 Year
  Sex: Male
  Weight: 88.7 kg

DRUGS (5)
  1. MERCAPTOPURINE. [Suspect]
     Active Substance: MERCAPTOPURINE
     Dates: end: 20210528
  2. METHOTREXATE. [Suspect]
     Active Substance: METHOTREXATE
     Dates: end: 20210526
  3. RITUXIMAB (MOAB C2B8 ANTI CD20, CHIMERIC) [Suspect]
     Active Substance: RITUXIMAB
     Dates: end: 20210526
  4. CYCLOPHOSPHAMIDE. [Suspect]
     Active Substance: CYCLOPHOSPHAMIDE
     Dates: end: 20210527
  5. CYTARABINE. [Suspect]
     Active Substance: CYTARABINE
     Dates: end: 20210528

REACTIONS (3)
  - Haemoglobin decreased [None]
  - Pyrexia [None]
  - Infection [None]

NARRATIVE: CASE EVENT DATE: 20210528
